FAERS Safety Report 20988692 (Version 10)
Quarter: 2023Q1

REPORT INFORMATION
  Report Type: Spontaneous
  Country: IN (occurrence: IN)
  Receive Date: 20220621
  Receipt Date: 20230307
  Transmission Date: 20230417
  Serious: Yes (Hospitalization, Other)
  Sender: FDA-Public Use
  Company Number: IN-PFIZER INC-202101133640

PATIENT
  Age: 40 Year
  Sex: Female
  Weight: 80 kg

DRUGS (8)
  1. PALBOCICLIB [Suspect]
     Active Substance: PALBOCICLIB
     Indication: Neoplasm progression
     Dosage: UNK
     Route: 048
     Dates: start: 202105
  2. PALBOCICLIB [Suspect]
     Active Substance: PALBOCICLIB
     Dosage: 125 MG, 1X/DAY
     Route: 048
     Dates: start: 20210601
  3. PALBOCICLIB [Suspect]
     Active Substance: PALBOCICLIB
     Dosage: 125 MG, 1X/DAY
     Route: 048
     Dates: start: 20210624
  4. PALBOCICLIB [Suspect]
     Active Substance: PALBOCICLIB
     Dosage: UNK
  5. PALBOCICLIB [Suspect]
     Active Substance: PALBOCICLIB
     Dosage: 125 MG
  6. PALBOCICLIB [Suspect]
     Active Substance: PALBOCICLIB
     Dosage: 125 MG, 1X/DAY
     Route: 048
  7. ZOLEDRONIC ACID [Concomitant]
     Active Substance: ZOLEDRONIC ACID
     Dosage: UNK
     Dates: start: 202203
  8. CALCIUM CARBONATE\CHOLECALCIFEROL [Concomitant]
     Active Substance: CALCIUM CARBONATE\CHOLECALCIFEROL
     Dosage: UNK, 1X/DAY

REACTIONS (21)
  - Vomiting [Unknown]
  - Constipation [Unknown]
  - Body mass index increased [Unknown]
  - Neutrophil count decreased [Unknown]
  - Neutrophil percentage abnormal [Unknown]
  - Haemoglobin decreased [Unknown]
  - Procedural pain [Unknown]
  - Pyrexia [Unknown]
  - Back pain [Unknown]
  - White blood cell count decreased [Unknown]
  - Haemoglobin abnormal [Unknown]
  - Platelet count decreased [Unknown]
  - Red blood cell count abnormal [Unknown]
  - Haematocrit abnormal [Unknown]
  - Overweight [Unknown]
  - Bone lesion [Unknown]
  - Pain [Unknown]
  - Heart rate decreased [Unknown]
  - Body surface area increased [Unknown]
  - Breast disorder female [Unknown]
  - Inappropriate schedule of product administration [Unknown]

NARRATIVE: CASE EVENT DATE: 20220209
